FAERS Safety Report 6354372-1 (Version None)
Quarter: 2009Q3

REPORT INFORMATION
  Report Type: 
  Country: None (occurrence: None)
  Receive Date: 20090909
  Receipt Date: 20090820
  Transmission Date: 20100115
  Serious: Yes (Hospitalization)
  Sender: FDA-Public Use
  Company Number: 002747

PATIENT
  Age: 61 Year
  Sex: Female
  Weight: 76 kg

DRUGS (12)
  1. MACUGEN [Suspect]
     Dosage: 0.3 MG EVERY 6 WKS, INTRAOCULAR
     Route: 031
     Dates: start: 20080327
  2. INJECTION HUMAN INSULIN     (INSULIN HUMAN) [Concomitant]
  3. GLIMADAY (GLIMEPIRIDE, METFORMIN) [Concomitant]
     Dates: start: 20080114
  4. AMLODIPINE [Concomitant]
     Route: 048
     Dates: start: 20080114
  5. MULTIVITAMINS (ASCORBIC ACID, ERGOCALCIFEROL, FOLIC ACID, NICOTINAMIDE [Concomitant]
     Dates: start: 20080114
  6. PANTOPRAZOLE (PANTOPRAZOLE) TABLET [Concomitant]
     Route: 048
     Dates: start: 20080114
  7. ATORVASTATIN [Concomitant]
     Route: 047
     Dates: start: 20080114
  8. TROPICAMIDE [Concomitant]
     Route: 047
     Dates: start: 20090325
  9. PROPARACAINE  ( PROMETACAINE) [Concomitant]
     Dates: start: 20090325
  10. XYLOCAINE [Concomitant]
     Route: 047
     Dates: start: 20090327
  11. OFLOXACIN  (OFLOXACIN) EYE DROPS  03/27/2009 [Concomitant]
  12. POVIDONE IODINE      ( POVIDONE-IODINE) EYE DROPS 03/27/2009 [Concomitant]

REACTIONS (8)
  - ALANINE AMINOTRANSFERASE INCREASED [None]
  - HAEMATOCRIT DECREASED [None]
  - HAEMOGLOBIN DECREASED [None]
  - MEAN CELL HAEMOGLOBIN DECREASED [None]
  - MEAN CELL VOLUME DECREASED [None]
  - RED BLOOD CELL COUNT DECREASED [None]
  - RED BLOOD CELL SEDIMENTATION RATE INCREASED [None]
  - VITREOUS HAEMORRHAGE [None]
